FAERS Safety Report 7903763-3 (Version None)
Quarter: 2011Q4

REPORT INFORMATION
  Report Type: 
  Country: None (occurrence: None)
  Receive Date: 20111109
  Receipt Date: 20111103
  Transmission Date: 20120403
  Serious: Yes (Death, Hospitalization)
  Sender: FDA-Public Use
  Company Number: US-ROCHE-613569

PATIENT
  Sex: Male
  Weight: 78.6 kg

DRUGS (6)
  1. SORAFENIB [Suspect]
     Indication: RENAL CELL CARCINOMA
     Dosage: TOTALDOSE ADMINISTERED : 200 MG
     Route: 048
  2. OXYCODONE HCL EXTENDED-RELEASE [Concomitant]
     Route: 048
  3. MULTI-VITAMIN [Concomitant]
     Route: 048
  4. AVASTIN [Suspect]
     Indication: RENAL CELL CARCINOMA
     Dosage: TOTAL DOSE ADMINISTERED 830 MG
     Route: 042
  5. STOOL SOFTENER NOS [Concomitant]
     Route: 048
  6. ASPIRIN [Concomitant]
     Route: 048

REACTIONS (6)
  - MUSCULAR WEAKNESS [None]
  - DEATH [None]
  - RENAL FAILURE [None]
  - RENAL FAILURE ACUTE [None]
  - BLOOD CREATININE INCREASED [None]
  - ATRIAL FIBRILLATION [None]
